FAERS Safety Report 16804008 (Version 1)
Quarter: 2019Q3

REPORT INFORMATION
  Report Type: Spontaneous
  Country: CH (occurrence: CH)
  Receive Date: 20190913
  Receipt Date: 20190913
  Transmission Date: 20191005
  Serious: Yes (Hospitalization, Other)
  Sender: FDA-Public Use
  Company Number: CH-LUPIN PHARMACEUTICALS INC.-2019-05877

PATIENT
  Age: 6 Week
  Sex: Male
  Weight: 4.8 kg

DRUGS (1)
  1. MORPHINE [Suspect]
     Active Substance: MORPHINE
     Indication: PAIN
     Dosage: 05 MILLIGRAM/KILOGRAM, UNK
     Route: 065

REACTIONS (8)
  - Bradypnoea [Recovered/Resolved]
  - Somnolence neonatal [Recovered/Resolved]
  - Restlessness [Recovered/Resolved]
  - Accidental overdose [Unknown]
  - Agitation neonatal [Recovered/Resolved]
  - Myoclonus [Recovered/Resolved]
  - Opisthotonus [Recovered/Resolved]
  - Tachypnoea [Recovered/Resolved]
